FAERS Safety Report 8865184 (Version 1)
Quarter: 2012Q4

REPORT INFORMATION
  Report Type: 
  Country: US (occurrence: US)
  Receive Date: 20121024
  Receipt Date: 20121024
  Transmission Date: 20130627
  Serious: No
  Sender: FDA-Public Use
  Company Number: US-AMGEN-USASP2012001573

PATIENT
  Age: 62 Year
  Sex: Female
  Weight: 77.1 kg

DRUGS (15)
  1. ENBREL [Suspect]
     Indication: RHEUMATOID ARTHRITIS
     Dosage: 50 mg, qwk
     Route: 058
     Dates: start: 20101001, end: 20111221
  2. ENBREL [Suspect]
     Dosage: 50 mg, qwk
     Route: 058
     Dates: start: 20120113
  3. JANUMET [Concomitant]
     Dosage: UNK
  4. ZOCOR [Concomitant]
     Dosage: 5 mg, UNK
  5. AMLODIPINE [Concomitant]
     Dosage: 2.5 mg, UNK
  6. METHOTREXATE [Concomitant]
     Dosage: 2.5 mg, UNK
  7. PREDNISONE [Concomitant]
     Dosage: 1 mg, UNK
  8. METFORMIN [Concomitant]
     Dosage: 500 mg, UNK
  9. OMEPRAZOLE [Concomitant]
     Dosage: 10 mg, UNK
  10. LEVOTHYROXIN [Concomitant]
     Dosage: 25 mug, UNK
  11. METOPROLOL [Concomitant]
     Dosage: 25 mg, UNK
  12. HYDROCHLOROTH [Concomitant]
     Dosage: 12.5 mg, UNK
  13. BENICAR [Concomitant]
     Dosage: 5 mg, UNK
  14. FOLIC ACID [Concomitant]
     Dosage: UNK
  15. FOLIC ACID [Concomitant]

REACTIONS (1)
  - Pyrexia [Recovered/Resolved]
